FAERS Safety Report 9426600 (Version 4)
Quarter: 2013Q3

REPORT INFORMATION
  Report Type: Spontaneous
  Country: US (occurrence: US)
  Receive Date: 20130730
  Receipt Date: 20130926
  Transmission Date: 20140515
  Serious: No
  Sender: FDA-Public Use
  Company Number: US-PFIZER INC-2013219822

PATIENT
  Age: 89 Year
  Sex: Female

DRUGS (3)
  1. FLECTOR [Suspect]
     Indication: BACK PAIN
     Dosage: UNK, 2X/DAY
     Route: 061
     Dates: start: 2011
  2. FLECTOR [Suspect]
     Indication: PAIN
  3. BENAZEPRIL [Concomitant]
     Dosage: 20 MG, 1X/DAY (QD)

REACTIONS (2)
  - Drug ineffective [Recovered/Resolved with Sequelae]
  - Product quality issue [Unknown]
